FAERS Safety Report 18283656 (Version 2)
Quarter: 2020Q3

REPORT INFORMATION
  Report Type: Spontaneous
  Country: US (occurrence: US)
  Receive Date: 20200918
  Receipt Date: 20200921
  Transmission Date: 20201103
  Serious: Yes (Other)
  Sender: FDA-Public Use
  Company Number: US-BIOGEN-2020BI00923894

PATIENT
  Age: 58 Year
  Sex: Female
  Weight: 81.6 kg

DRUGS (5)
  1. AVONEX PEN [Suspect]
     Active Substance: INTERFERON BETA-1A
     Indication: PRODUCT USED FOR UNKNOWN INDICATION
     Route: 065
  2. AVONEX PEN [Suspect]
     Active Substance: INTERFERON BETA-1A
  3. AVONEX PEN [Suspect]
     Active Substance: INTERFERON BETA-1A
  4. AVONEX PEN [Suspect]
     Active Substance: INTERFERON BETA-1A
  5. GABAPENTIN. [Concomitant]
     Active Substance: GABAPENTIN
     Indication: NEURALGIA
     Route: 065

REACTIONS (7)
  - Ligamentum flavum hypertrophy [Unknown]
  - Intervertebral disc protrusion [Unknown]
  - Spinal stenosis [Unknown]
  - Spinal osteoarthritis [Unknown]
  - Exostosis [Unknown]
  - Intervertebral disc degeneration [Unknown]
  - Cervical radiculopathy [Unknown]

NARRATIVE: CASE EVENT DATE: 20200220
